FAERS Safety Report 7912348-4 (Version None)
Quarter: 2011Q4

REPORT INFORMATION
  Report Type: 
  Country: None (occurrence: None)
  Receive Date: 20111114
  Receipt Date: 20110801
  Transmission Date: 20120403
  Serious: No
  Sender: FDA-Public Use
  Company Number: US-BAYER-2011-069876

PATIENT
  Age: 81 Year
  Sex: Female
  Weight: 109 kg

DRUGS (3)
  1. DABIGATRAN [Concomitant]
  2. ALEVE (CAPLET) [Suspect]
     Indication: ARTHRITIS
     Dosage: UNK, QD
     Route: 048
     Dates: start: 20110730
  3. METOPROLOL SUCCINATE [Concomitant]

REACTIONS (3)
  - DRUG INEFFECTIVE [None]
  - COUGH [None]
  - RHINORRHOEA [None]
